FAERS Safety Report 7597611-1 (Version None)
Quarter: 2011Q3

REPORT INFORMATION
  Report Type: 
  Country: None (occurrence: None)
  Receive Date: 20110708
  Receipt Date: 20110628
  Transmission Date: 20111222
  Serious: Yes (Other)
  Sender: FDA-Public Use
  Company Number: US-ROCHE-786720

PATIENT
  Sex: Female

DRUGS (2)
  1. IXEMPRA KIT [Suspect]
     Route: 065
     Dates: start: 20090101
  2. AVASTIN [Suspect]
     Route: 065
     Dates: start: 20090101, end: 20110101

REACTIONS (1)
  - NEOPLASM MALIGNANT [None]
